FAERS Safety Report 20442027 (Version 3)
Quarter: 2022Q3

REPORT INFORMATION
  Report Type: Spontaneous
  Country: US (occurrence: None)
  Receive Date: 20220208
  Receipt Date: 20220915
  Transmission Date: 20221027
  Serious: Yes (Other)
  Sender: FDA-Public Use
  Company Number: 2022A054020

PATIENT
  Age: 72 Year
  Sex: Male
  Weight: 76.1 kg

DRUGS (1)
  1. BYDUREON BCISE [Suspect]
     Active Substance: EXENATIDE
     Indication: Type 2 diabetes mellitus
     Route: 058
     Dates: start: 20200916

REACTIONS (9)
  - Peripheral arterial occlusive disease [Unknown]
  - Hypertension [Unknown]
  - Post-traumatic stress disorder [Unknown]
  - Dementia Alzheimer^s type [Unknown]
  - Tremor [Unknown]
  - Product dose omission issue [Unknown]
  - Wrong technique in device usage process [Unknown]
  - Device leakage [Unknown]
  - Device difficult to use [Unknown]

NARRATIVE: CASE EVENT DATE: 20210101
